FAERS Safety Report 6413205-5 (Version None)
Quarter: 2009Q4

REPORT INFORMATION
  Report Type: 
  Country: None (occurrence: None)
  Receive Date: 20091026
  Receipt Date: 20091013
  Transmission Date: 20100525
  Serious: Yes (Other)
  Sender: FDA-Public Use
  Company Number: PHHY2009CA44893

PATIENT
  Sex: Female

DRUGS (1)
  1. ALISKIREN ALI+ [Suspect]

REACTIONS (1)
  - MYOCARDIAL INFARCTION [None]
